FAERS Safety Report 22170376 (Version 2)
Quarter: 2023Q2

REPORT INFORMATION
  Report Type: Report from Study
  Country: US (occurrence: US)
  Receive Date: 20230404
  Receipt Date: 20230405
  Transmission Date: 20230722
  Serious: Yes (Other)
  Sender: FDA-Public Use
  Company Number: US-ABBVIE-4713246

PATIENT
  Sex: Female
  Weight: 85 kg

DRUGS (3)
  1. VENCLEXTA [Suspect]
     Active Substance: VENETOCLAX
     Indication: Acute myeloid leukaemia
     Dosage: FORM STRENGTH: 100 MG?FREQUENCY: 0.25 DAYS??LAST ADMIN DATE: 2023 , ?4 TABLET(S) BY MOUTH EVERY D...
     Route: 048
     Dates: start: 20230123
  2. VENCLEXTA [Suspect]
     Active Substance: VENETOCLAX
     Indication: Acute myeloid leukaemia
     Dosage: FORM STRENGTH: 100 MG??DURATION TEXT: 4 TABLET(S) BY MOUTH DAILY 3 WEEK(S) ON, 1 WEEK(S) OFF
     Route: 048
     Dates: start: 20230220
  3. AZACITIDINE [Concomitant]
     Active Substance: AZACITIDINE
     Indication: Product used for unknown indication

REACTIONS (1)
  - Dementia [Unknown]
